FAERS Safety Report 15143433 (Version 1)
Quarter: 2018Q3

REPORT INFORMATION
  Report Type: Spontaneous
  Country: US (occurrence: US)
  Receive Date: 20180618
  Receipt Date: 20180618
  Transmission Date: 20181010
  Serious: No
  Sender: FDA-Public Use
  Company Number: None

PATIENT
  Age: 27 Year
  Sex: Female
  Weight: 90.72 kg

DRUGS (2)
  1. NEXPLANON [Suspect]
     Active Substance: ETONOGESTREL
     Dates: start: 20180313
  2. ZOLOFT [Concomitant]
     Active Substance: SERTRALINE HYDROCHLORIDE

REACTIONS (23)
  - Weight increased [None]
  - Acne [None]
  - Mood swings [None]
  - Vaginal haemorrhage [None]
  - Loss of consciousness [None]
  - Contraceptive implant [None]
  - Tremor [None]
  - Anxiety [None]
  - Dyspareunia [None]
  - Implant site pain [None]
  - Pyrexia [None]
  - Vertigo [None]
  - Decreased appetite [None]
  - Paraesthesia [None]
  - Fatigue [None]
  - Hypoaesthesia [None]
  - Nausea [None]
  - Irritability [None]
  - Pain [None]
  - Dizziness [None]
  - Depression [None]
  - Asthenia [None]
  - Myalgia [None]

NARRATIVE: CASE EVENT DATE: 20180315
